FAERS Safety Report 17415193 (Version 1)
Quarter: 2020Q1

REPORT INFORMATION
  Report Type: Report from Study
  Country: US (occurrence: US)
  Receive Date: 20200213
  Receipt Date: 20200213
  Transmission Date: 20200409
  Serious: Yes (Hospitalization)
  Sender: FDA-Public Use
  Company Number: US-ENDO PHARMACEUTICALS INC-2020-001502

PATIENT
  Age: 4 Year
  Sex: Female
  Weight: 23.5 kg

DRUGS (6)
  1. PREDNISONE. [Suspect]
     Active Substance: PREDNISONE
     Indication: B PRECURSOR TYPE ACUTE LEUKAEMIA
     Dosage: 17.5 MG, (MAINTENANCE DAY 1-5, 29-33)
     Route: 048
     Dates: start: 20191203
  2. MERCAPTOPURINE. [Suspect]
     Active Substance: MERCAPTOPURINE
     Indication: B PRECURSOR TYPE ACUTE LEUKAEMIA
     Dosage: 63 MG, (MAINTENANCE DAY 1-84)
     Route: 048
     Dates: start: 20191203
  3. METHOTREXATE SODIUM. [Suspect]
     Active Substance: METHOTREXATE SODIUM
     Indication: B PRECURSOR TYPE ACUTE LEUKAEMIA
     Dosage: 16.25 MG, (MAINTENANCE DAY 8, 15, 22)
     Route: 048
     Dates: start: 20191210
  4. INCB018424 [Suspect]
     Active Substance: RUXOLITINIB
     Indication: B PRECURSOR TYPE ACUTE LEUKAEMIA
     Dosage: 40 MG, BID (MAINTENANCE DAY 1-14, 29-33)
     Route: 048
     Dates: start: 20191203
  5. VINCRISTINE [Suspect]
     Active Substance: VINCRISTINE
     Indication: B PRECURSOR TYPE ACUTE LEUKAEMIA
     Dosage: 1.26 MG, (MAINTENANCE DAY 1, 29)
     Route: 042
     Dates: start: 20191203
  6. METHOTREXATE. [Suspect]
     Active Substance: METHOTREXATE
     Indication: B PRECURSOR TYPE ACUTE LEUKAEMIA
     Dosage: 12 MG, (MAINTENANCE DAY 1,29)
     Route: 037
     Dates: start: 20191203

REACTIONS (1)
  - Urinary tract infection [Recovered/Resolved]

NARRATIVE: CASE EVENT DATE: 20200106
